FAERS Safety Report 13758775 (Version 1)
Quarter: 2017Q3

REPORT INFORMATION
  Report Type: Spontaneous
  Country: US (occurrence: US)
  Receive Date: 20170717
  Receipt Date: 20170717
  Transmission Date: 20171127
  Serious: Yes (Life-Threatening, Hospitalization, Disabling, Other)
  Sender: FDA-Public Use
  Company Number: None

PATIENT
  Age: 32 Year
  Sex: Female
  Weight: 45 kg

DRUGS (1)
  1. LUPRON [Suspect]
     Active Substance: LEUPROLIDE ACETATE
     Indication: ENDOMETRIOSIS
     Dosage: ?          QUANTITY:1 INJECTION(S);OTHER FREQUENCY:3 MONTHS;?
     Route: 030
     Dates: start: 20170214, end: 20170301

REACTIONS (5)
  - Amnesia [None]
  - Arthralgia [None]
  - Seizure [None]
  - Loss of consciousness [None]
  - Tooth loss [None]

NARRATIVE: CASE EVENT DATE: 20170527
